FAERS Safety Report 6495536-6 (Version None)
Quarter: 2009Q4

REPORT INFORMATION
  Report Type: 
  Country: None (occurrence: None)
  Receive Date: 20091214
  Receipt Date: 20090715
  Transmission Date: 20100525
  Serious: No
  Sender: FDA-Public Use
  Company Number: US-BRISTOL-MYERS SQUIBB COMPANY-14696629

PATIENT
  Age: 61 Year
  Sex: Female
  Weight: 68 kg

DRUGS (4)
  1. ABILIFY [Suspect]
     Dosage: STARTED WITH 2MG PO QD FOR 7 DAYS, THEN INCREASED TO 5MG PO QD
     Route: 048
     Dates: start: 20090618
  2. SOMA [Suspect]
     Dosage: DOSAGE FORM: TABLET
     Dates: start: 20090701, end: 20090701
  3. XANAX [Concomitant]
  4. HYDROCODONE [Concomitant]

REACTIONS (6)
  - CYSTITIS [None]
  - DELIRIUM [None]
  - MUSCULOSKELETAL STIFFNESS [None]
  - PAIN [None]
  - PARAESTHESIA [None]
  - VIRAL INFECTION [None]
